FAERS Safety Report 7828824-9 (Version None)
Quarter: 2011Q4

REPORT INFORMATION
  Report Type: 
  Country: None (occurrence: None)
  Receive Date: 20111020
  Receipt Date: 20110926
  Transmission Date: 20120403
  Serious: Yes (Hospitalization)
  Sender: FDA-Public Use
  Company Number: DK-BAYER-2011-090622

PATIENT
  Age: 86 Year
  Sex: Female

DRUGS (12)
  1. ASPIRIN [Suspect]
     Indication: ESSENTIAL THROMBOCYTHAEMIA
     Dosage: 150 MG, QD
     Route: 048
     Dates: start: 20020101, end: 20060621
  2. AGGRENOX [Suspect]
     Indication: ESSENTIAL THROMBOCYTHAEMIA
     Dosage: 200 MG, BID
     Route: 048
     Dates: start: 20060413, end: 20060515
  3. DIGOXIN [Concomitant]
     Indication: ATRIAL FLUTTER
     Dosage: 187.5 UG, 1X/DAY:QD
     Route: 048
     Dates: start: 20060518
  4. HYDROXYUREA [Suspect]
     Indication: ESSENTIAL THROMBOCYTHAEMIA
     Dosage: 500 MG,QD
     Dates: start: 20030611
  5. DIGOXIN [Concomitant]
     Dosage: 62.5 ?G, 1X/DAY:QD
     Route: 048
     Dates: start: 20060501, end: 20060517
  6. ACETAMINOPHEN [Concomitant]
     Indication: PAIN
     Dosage: 1000 MG, 4X/DAY:QID
     Route: 048
     Dates: start: 20060606
  7. FOLIC ACID [Concomitant]
     Indication: BLOOD HOMOCYSTEINE INCREASED
     Dosage: 5 MG, 1X/DAY:QD
     Route: 048
     Dates: start: 20041126
  8. AMOXICILLIN [Concomitant]
     Indication: DUODENAL ULCER
     Dosage: 750 MG, 3X/DAY:TID
     Route: 048
     Dates: start: 20060612
  9. ASPIRIN [Suspect]
     Dosage: 300 MG, ONE DOSE
     Route: 048
     Dates: start: 20060512, end: 20060513
  10. ASPIRIN [Suspect]
     Dosage: 75 MG, QD
     Route: 048
     Dates: start: 20060522
  11. ALLOPURINOL [Concomitant]
     Indication: PROPHYLAXIS
     Dosage: 300 MG, 1X/DAY:QD
     Route: 048
     Dates: start: 20030611
  12. BLOOD AND RELATED PRODUCTS [Concomitant]

REACTIONS (1)
  - DUODENAL ULCER [None]
